FAERS Safety Report 5364155-7 (Version None)
Quarter: 2007Q2

REPORT INFORMATION
  Report Type: 
  Country: None (occurrence: None)
  Receive Date: 20070620
  Receipt Date: 20070608
  Transmission Date: 20071010
  Serious: Yes (Other)
  Sender: FDA-Public Use
  Company Number: US-PFIZER INC-2007047729

PATIENT
  Sex: Female

DRUGS (3)
  1. CHANTIX [Suspect]
  2. INDERAL [Concomitant]
     Indication: TREMOR
  3. PRIMIDONE [Concomitant]
     Indication: TREMOR

REACTIONS (1)
  - TREMOR [None]
